FAERS Safety Report 8596994 (Version 2)
Quarter: 2013Q2

REPORT INFORMATION
  Report Type: Spontaneous
  Country: US (occurrence: US)
  Receive Date: 20120605
  Receipt Date: 20130617
  Transmission Date: 20140414
  Serious: Yes (Hospitalization, Disabling, Other)
  Sender: FDA-Public Use
  Company Number: US-ASTRAZENECA-2012SE34718

PATIENT
  Sex: Female

DRUGS (28)
  1. NEXIUM [Suspect]
     Indication: DYSPEPSIA
     Route: 048
  2. NEXIUM [Suspect]
     Indication: GASTRIC DISORDER
     Route: 048
  3. NEXIUM [Suspect]
     Indication: DYSPEPSIA
     Route: 048
     Dates: end: 2000
  4. NEXIUM [Suspect]
     Indication: GASTRIC DISORDER
     Route: 048
     Dates: end: 2000
  5. PRILOSEC [Suspect]
     Route: 048
  6. LANSOPRAZOLE [Concomitant]
  7. ZANTAC [Concomitant]
  8. PEPCID [Concomitant]
  9. TUMS [Concomitant]
  10. ALKA-SELTZER [Concomitant]
  11. MILK OF MAGNESIA [Concomitant]
  12. PEPTO-BISMOL [Concomitant]
  13. ROLAIDS [Concomitant]
  14. MYLANTA [Concomitant]
  15. HYDROCODONE [Concomitant]
  16. DIPHENHYDRAMIN [Concomitant]
  17. DPS [Concomitant]
     Dosage: 100
  18. BUOPIRONE [Concomitant]
  19. LOSARTAN [Concomitant]
  20. AMLODIPINE [Concomitant]
  21. SIMVASTATIN [Concomitant]
  22. ZOLPIDEM [Concomitant]
  23. GABAPENTIN [Concomitant]
  24. MELOXICAM [Concomitant]
  25. OXYBUTYNIN [Concomitant]
  26. METFORMIN [Concomitant]
  27. MULTI VIT [Concomitant]
  28. VENTRILIN [Concomitant]

REACTIONS (21)
  - Convulsion [Unknown]
  - Limb injury [Unknown]
  - Cerebrovascular accident [Unknown]
  - Wrist fracture [Unknown]
  - Bone density decreased [Unknown]
  - Osteoporosis [Unknown]
  - Upper limb fracture [Unknown]
  - Foot fracture [Unknown]
  - Angina pectoris [Unknown]
  - Arthritis [Unknown]
  - Bone pain [Unknown]
  - Osteogenesis imperfecta [Unknown]
  - Cataract [Unknown]
  - Cardiovascular disorder [Unknown]
  - Glaucoma [Unknown]
  - Scoliosis [Unknown]
  - Vitamin D deficiency [Unknown]
  - Deformity [Unknown]
  - Diabetes mellitus [Unknown]
  - Multiple fractures [Unknown]
  - Depression [Unknown]
